FAERS Safety Report 9242441 (Version 1)
Quarter: 2013Q2

REPORT INFORMATION
  Report Type: Spontaneous
  Country: US (occurrence: US)
  Receive Date: 20130419
  Receipt Date: 20130419
  Transmission Date: 20140414
  Serious: No
  Sender: FDA-Public Use
  Company Number: US-ASTRAZENECA-2012SE32988

PATIENT
  Age: 42 Year
  Sex: Female

DRUGS (2)
  1. ZOMIG [Suspect]
     Indication: MUSCLE SPASMS
     Route: 048
  2. ZOMIG [Suspect]
     Indication: MIGRAINE
     Route: 048

REACTIONS (4)
  - Migraine [Recovering/Resolving]
  - Vomiting [Unknown]
  - Drug dose omission [Unknown]
  - Off label use [Unknown]
